FAERS Safety Report 11507404 (Version 1)
Quarter: 2015Q3

REPORT INFORMATION
  Report Type: Spontaneous
  Country: US (occurrence: US)
  Receive Date: 20150903
  Receipt Date: 20150903
  Transmission Date: 20151125
  Serious: No
  Sender: FDA-Public Use
  Company Number: US-ELI_LILLY_AND_COMPANY-US200905000733

PATIENT
  Age: 26 Year
  Sex: Female

DRUGS (5)
  1. PRENATAL VITAMINS /01549301/ [Concomitant]
     Active Substance: VITAMINS
  2. HUMALOG [Suspect]
     Active Substance: INSULIN LISPRO
     Indication: GESTATIONAL DIABETES
     Dosage: 9 U, OTHER
     Dates: start: 20090407, end: 20090424
  3. HUMALOG [Suspect]
     Active Substance: INSULIN LISPRO
     Dosage: 11 U, OTHER
     Dates: start: 20090407, end: 20090424
  4. LANTUS [Concomitant]
     Active Substance: INSULIN GLARGINE
     Indication: GESTATIONAL DIABETES
     Dosage: 30 U, EACH MORNING
     Dates: start: 20090402, end: 20090424
  5. HUMALOG [Suspect]
     Active Substance: INSULIN LISPRO
     Dosage: 11 U, OTHER
     Dates: start: 20090407, end: 20090424

REACTIONS (3)
  - Glucose tolerance impaired [Unknown]
  - Foetal exposure during pregnancy [Recovered/Resolved]
  - Cholestasis of pregnancy [Unknown]

NARRATIVE: CASE EVENT DATE: 20090407
